FAERS Safety Report 4910483-6 (Version None)
Quarter: 2006Q1

REPORT INFORMATION
  Report Type: 
  Country: None (occurrence: None)
  Receive Date: 20060209
  Receipt Date: 20060206
  Transmission Date: 20060701
  Serious: Yes (Hospitalization)
  Sender: FDA-Public Use
  Company Number: 200610409GDS

PATIENT
  Age: 50 Year
  Sex: Male

DRUGS (3)
  1. ADALAT [Suspect]
     Indication: HYPERTENSION
     Dosage: 30 MG, TOTAL DAILY; ORAL
     Route: 048
     Dates: start: 20051101, end: 20060206
  2. LOTENSIN [Concomitant]
  3. ACERTIL [Concomitant]

REACTIONS (2)
  - DYSPNOEA [None]
  - UNEVALUABLE EVENT [None]
